FAERS Safety Report 9498239 (Version 2)
Quarter: 2013Q3

REPORT INFORMATION
  Report Type: Spontaneous
  Country: US (occurrence: US)
  Receive Date: 20130904
  Receipt Date: 20130918
  Transmission Date: 20140515
  Serious: Yes (Other)
  Sender: FDA-Public Use
  Company Number: US-JNJFOC-20130813553

PATIENT
  Age: 77 Year
  Sex: Male
  Weight: 86.18 kg

DRUGS (21)
  1. ZYTIGA [Suspect]
     Indication: PROSTATE CANCER
     Dosage: 250 MG 4 TABLETS A DAY = 1000 MG PER DAY
     Route: 048
     Dates: start: 20130809
  2. TRAMADOL [Suspect]
     Indication: BONE PAIN
     Route: 065
     Dates: start: 2013
  3. TYLENOL [Concomitant]
     Indication: BLOOD PRESSURE
     Route: 065
  4. PREDNISONE [Concomitant]
     Indication: PROSTATE CANCER
     Route: 048
     Dates: start: 20130809
  5. HYTRIN [Concomitant]
     Indication: BLOOD PRESSURE
     Route: 065
  6. NORVASC [Concomitant]
     Indication: BLOOD PRESSURE
     Route: 065
  7. NORVASC [Concomitant]
     Indication: BLOOD PRESSURE
     Route: 065
     Dates: start: 20100324
  8. DIOVAN [Concomitant]
     Indication: BLOOD PRESSURE
     Route: 065
     Dates: start: 20081124
  9. LORATADINE [Concomitant]
     Indication: BLOOD PRESSURE
     Route: 065
  10. ZANTAC [Concomitant]
     Indication: BLOOD CHOLESTEROL
  11. ZANTAC [Concomitant]
     Indication: BLOOD CHOLESTEROL
  12. ZANTAC [Concomitant]
     Indication: BLOOD PRESSURE
  13. ZANTAC [Concomitant]
     Indication: BLOOD PRESSURE
  14. PRESERVISION [Concomitant]
     Indication: BLOOD PRESSURE
     Route: 065
  15. ASPIRIN [Concomitant]
     Indication: BLOOD PRESSURE
     Route: 065
  16. LUTEIN [Concomitant]
     Indication: BLOOD PRESSURE
     Route: 065
  17. CALTRATE D [Concomitant]
     Indication: BLOOD PRESSURE
     Dates: start: 20120221
  18. IMODIUM [Concomitant]
     Indication: BLOOD PRESSURE
  19. CASODEX [Concomitant]
     Indication: BLOOD PRESSURE
     Route: 065
     Dates: start: 20120224
  20. FISH OIL [Concomitant]
     Indication: BLOOD CHOLESTEROL
     Route: 065
     Dates: start: 20100607
  21. CRESTOR [Concomitant]
     Indication: BLOOD CHOLESTEROL
     Route: 065

REACTIONS (6)
  - Haemoglobin decreased [Unknown]
  - Flatulence [Not Recovered/Not Resolved]
  - Nausea [Not Recovered/Not Resolved]
  - Flank pain [Not Recovered/Not Resolved]
  - Dysgeusia [Not Recovered/Not Resolved]
  - Abdominal discomfort [Not Recovered/Not Resolved]
